FAERS Safety Report 9178876 (Version 1)
Quarter: 2013Q1

REPORT INFORMATION
  Report Type: Spontaneous
  Country: FR (occurrence: FR)
  Receive Date: 20130321
  Receipt Date: 20130321
  Transmission Date: 20140127
  Serious: Yes (Death, Hospitalization)
  Sender: FDA-Public Use
  Company Number: FR-ROCHE-1203679

PATIENT
  Sex: Male
  Weight: 64 kg

DRUGS (1)
  1. MABTHERA [Suspect]
     Indication: CHRONIC LYMPHOCYTIC LEUKAEMIA
     Route: 065
     Dates: start: 20130103

REACTIONS (3)
  - Cardio-respiratory arrest [Fatal]
  - Acidosis [Unknown]
  - Respiratory failure [Unknown]
